FAERS Safety Report 8965028 (Version 1)
Quarter: 2012Q4

REPORT INFORMATION
  Report Type: 
  Country: ES (occurrence: ES)
  Receive Date: 20121214
  Receipt Date: 20121214
  Transmission Date: 20130627
  Serious: Yes (Other)
  Sender: FDA-Public Use
  Company Number: PHHY2012ES114977

PATIENT
  Age: 49 Year
  Sex: Female

DRUGS (1)
  1. RASILEZ [Suspect]
     Indication: HYPERTENSION
     Dosage: 300 mg, QOD
     Route: 048

REACTIONS (8)
  - Erythema [Unknown]
  - Hypoaesthesia oral [Unknown]
  - Urine output decreased [Unknown]
  - Rash maculo-papular [Unknown]
  - Hypoaesthesia [Unknown]
  - Oedema peripheral [Unknown]
  - Dizziness [Unknown]
  - Hypotension [Unknown]
